FAERS Safety Report 4404452-2 (Version None)
Quarter: 2004Q3

REPORT INFORMATION
  Report Type: 
  Country: None (occurrence: None)
  Receive Date: 20040720
  Receipt Date: 20040708
  Transmission Date: 20050211
  Serious: Yes (Hospitalization, Other)
  Sender: FDA-Public Use
  Company Number: 2004IM000242

PATIENT
  Age: 54 Year
  Sex: Female

DRUGS (1)
  1. ADVAFERON (A643_INTERFERON ALFACON-1) [Suspect]
     Indication: HEPATITIS C
     Dosage: 18 MU; QD;SUBCUTANEOUS
     Route: 058
     Dates: start: 20020123, end: 20020501

REACTIONS (6)
  - BRADYCARDIA [None]
  - DEAFNESS [None]
  - MENIERE'S DISEASE [None]
  - PAIN IN EXTREMITY [None]
  - PLATELET COUNT DECREASED [None]
  - WHITE BLOOD CELL COUNT DECREASED [None]
